FAERS Safety Report 10015158 (Version 2)
Quarter: 2014Q1

REPORT INFORMATION
  Report Type: Spontaneous
  Country: US (occurrence: US)
  Receive Date: 20140317
  Receipt Date: 20140317
  Transmission Date: 20141002
  Serious: No
  Sender: FDA-Public Use
  Company Number: US-GILEAD-2012-0057805

PATIENT
  Sex: Female

DRUGS (4)
  1. LETAIRIS [Suspect]
     Indication: PULMONARY HYPERTENSION
     Dosage: 5 MG, UNK
     Route: 048
     Dates: start: 20110428
  2. LETAIRIS [Suspect]
     Indication: CONGENITAL DIAPHRAGMATIC HERNIA
  3. LETAIRIS [Suspect]
     Indication: HEART DISEASE CONGENITAL
  4. CHLORHEXIDINE [Concomitant]

REACTIONS (2)
  - Procedural site reaction [Unknown]
  - Procedural site reaction [Unknown]
